FAERS Safety Report 4903884-3 (Version None)
Quarter: 2006Q1

REPORT INFORMATION
  Report Type: 
  Country: None (occurrence: None)
  Receive Date: 20060208
  Receipt Date: 20050719
  Transmission Date: 20060701
  Serious: No
  Sender: FDA-Public Use
  Company Number: US-GLAXOSMITHKLINE-A0567041A

PATIENT
  Age: 19 Year
  Sex: Male

DRUGS (4)
  1. PAROXETINE HCL [Suspect]
     Indication: OBSESSIVE-COMPULSIVE DISORDER
     Dosage: 10MG PER DAY
     Route: 048
     Dates: start: 20050320
  2. RISPERDAL [Concomitant]
  3. DEXEDRINE [Concomitant]
  4. DEPAKENE [Concomitant]

REACTIONS (1)
  - DRUG INEFFECTIVE [None]
